FAERS Safety Report 7798087-1 (Version None)
Quarter: 2011Q4

REPORT INFORMATION
  Report Type: 
  Country: None (occurrence: None)
  Receive Date: 20111005
  Receipt Date: 20110926
  Transmission Date: 20120403
  Serious: Yes (Other)
  Sender: FDA-Public Use
  Company Number: US-JNJFOC-20100109571

PATIENT
  Sex: Female
  Weight: 56.7 kg

DRUGS (11)
  1. RIFAMPIN [Concomitant]
     Indication: CROHN'S DISEASE
  2. REMICADE [Suspect]
     Route: 042
     Dates: start: 20060428
  3. REMICADE [Suspect]
     Route: 042
     Dates: start: 20091124
  4. REMICADE [Suspect]
     Route: 042
     Dates: start: 20060215
  5. REMICADE [Suspect]
     Route: 042
     Dates: start: 20091208
  6. ANTIBIOTICS [Concomitant]
     Indication: CROHN'S DISEASE
  7. REMICADE [Suspect]
     Route: 042
     Dates: start: 20040920
  8. NARCOTIC ANALGESICS, NOS [Concomitant]
     Indication: CROHN'S DISEASE
  9. MYCOPHENOLATE MOFETIL (CELLCEPT) [Concomitant]
     Indication: CROHN'S DISEASE
  10. ADALIMUMAB [Concomitant]
     Indication: CROHN'S DISEASE
  11. REMICADE [Suspect]
     Indication: CROHN'S DISEASE
     Dosage: 3 INFUSIONS PRIOR TO BASELINE
     Route: 042

REACTIONS (2)
  - FISTULA [None]
  - ANAEMIA [None]
